FAERS Safety Report 5361947-5 (Version None)
Quarter: 2007Q2

REPORT INFORMATION
  Report Type: 
  Country: None (occurrence: None)
  Receive Date: 20070615
  Receipt Date: 20070615
  Transmission Date: 20071010
  Serious: Yes (Other)
  Sender: FDA-Public Use
  Company Number: None

PATIENT
  Age: 84 Year
  Sex: Female

DRUGS (8)
  1. XANAX [Suspect]
     Dates: start: 20051208, end: 20051231
  2. CARDIZEM [Suspect]
     Dates: start: 20051208, end: 20051231
  3. LOPRESSOR [Suspect]
     Dates: start: 20051205, end: 20051231
  4. CIPRO [Concomitant]
  5. COLACE [Concomitant]
  6. ATROPINE [Concomitant]
  7. ALPHAGAN [Concomitant]
  8. PREDNISONE TAB [Concomitant]

REACTIONS (5)
  - DRUG TOXICITY [None]
  - JAUNDICE [None]
  - MIXED HEPATOCELLULAR-CHOLESTATIC INJURY [None]
  - PAIN [None]
  - URTICARIA [None]
